FAERS Safety Report 4797605-5 (Version None)
Quarter: 2005Q3

REPORT INFORMATION
  Report Type: 
  Country: None (occurrence: None)
  Receive Date: 20050929
  Receipt Date: 20050711
  Transmission Date: 20060218
  Serious: No
  Sender: FDA-Public Use
  Company Number: 05P-163-0305478-00

PATIENT
  Age: 49 Year
  Weight: 86.1834 kg

DRUGS (7)
  1. HUMIRA [Suspect]
     Indication: RHEUMATOID ARTHRITIS
     Dosage: 40 MG, 1 IN 2 WK, SUBCUTANEOUS
     Route: 058
     Dates: start: 20050513
  2. METHOTREXATE [Concomitant]
  3. PREDNISONE [Concomitant]
  4. SINGULAIR [Concomitant]
  5. ESTROGENS CONJUGATED [Concomitant]
  6. SERETIDE MITE [Concomitant]
  7. SALBUTAMOL [Concomitant]

REACTIONS (1)
  - PROCEDURAL COMPLICATION [None]
